FAERS Safety Report 13412493 (Version 2)
Quarter: 2017Q4

REPORT INFORMATION
  Report Type: Spontaneous
  Country: US (occurrence: US)
  Receive Date: 20170406
  Receipt Date: 20171123
  Transmission Date: 20180320
  Serious: No
  Sender: FDA-Public Use
  Company Number: US-JNJFOC-20170309489

PATIENT
  Sex: Male

DRUGS (10)
  1. RISPERDAL [Suspect]
     Active Substance: RISPERIDONE
     Indication: AUTISM SPECTRUM DISORDER
     Route: 048
     Dates: start: 20101001, end: 20140925
  2. RISPERDAL [Suspect]
     Active Substance: RISPERIDONE
     Indication: ATTENTION DEFICIT/HYPERACTIVITY DISORDER
     Route: 048
     Dates: start: 20101001, end: 20140925
  3. RISPERDAL [Suspect]
     Active Substance: RISPERIDONE
     Indication: ATTENTION DEFICIT/HYPERACTIVITY DISORDER
     Route: 048
     Dates: start: 20000419, end: 20000711
  4. RISPERIDONE. [Suspect]
     Active Substance: RISPERIDONE
     Indication: PRODUCT USED FOR UNKNOWN INDICATION
     Route: 048
  5. RISPERIDONE. [Suspect]
     Active Substance: RISPERIDONE
     Indication: ATTENTION DEFICIT/HYPERACTIVITY DISORDER
     Dosage: 0.5MG, 1MG, 3MG, 4MG
     Route: 048
     Dates: start: 20101004, end: 20161012
  6. RISPERIDONE. [Suspect]
     Active Substance: RISPERIDONE
     Indication: TRISOMY 21
     Dosage: 0.5MG, 1MG, 3MG, 4MG
     Route: 048
     Dates: start: 20101004, end: 20161012
  7. RISPERIDONE. [Suspect]
     Active Substance: RISPERIDONE
     Indication: AUTISM SPECTRUM DISORDER
     Dosage: 0.5MG, 1MG, 3MG, 4MG
     Route: 048
     Dates: start: 20101004, end: 20161012
  8. RISPERDAL [Suspect]
     Active Substance: RISPERIDONE
     Indication: TRISOMY 21
     Route: 048
     Dates: start: 20000419, end: 20000711
  9. RISPERDAL [Suspect]
     Active Substance: RISPERIDONE
     Indication: AUTISM SPECTRUM DISORDER
     Route: 048
     Dates: start: 20000419, end: 20000711
  10. RISPERDAL [Suspect]
     Active Substance: RISPERIDONE
     Indication: TRISOMY 21
     Route: 048
     Dates: start: 20101001, end: 20140925

REACTIONS (2)
  - Gynaecomastia [Unknown]
  - Emotional disorder [Unknown]
